FAERS Safety Report 21796632 (Version 7)
Quarter: 2024Q1

REPORT INFORMATION
  Report Type: Report from Study
  Country: US (occurrence: US)
  Receive Date: 20221229
  Receipt Date: 20240307
  Transmission Date: 20240410
  Serious: No
  Sender: FDA-Public Use
  Company Number: US-ACADIA PHARMACEUTICALS INC.-ACA-2022-PIM-004232

PATIENT
  Sex: Female

DRUGS (2)
  1. NUPLAZID [Suspect]
     Active Substance: PIMAVANSERIN TARTRATE
     Indication: Parkinson^s disease psychosis
     Dosage: 34 MILLIGRAM, QD
     Route: 048
  2. NUPLAZID [Suspect]
     Active Substance: PIMAVANSERIN TARTRATE
     Dosage: 34 MILLIGRAM, QD
     Route: 048

REACTIONS (17)
  - Product dose omission issue [Unknown]
  - Parkinson^s disease [Unknown]
  - Abnormal behaviour [Unknown]
  - Condition aggravated [Not Recovered/Not Resolved]
  - Dysgraphia [Unknown]
  - Speech disorder [Unknown]
  - Multiple drug therapy [Not Recovered/Not Resolved]
  - Refusal of treatment by patient [Recovered/Resolved]
  - Product dose omission issue [Unknown]
  - Delusion [Not Recovered/Not Resolved]
  - Hot flush [Unknown]
  - Paraesthesia [Unknown]
  - Nervous system disorder [Unknown]
  - Hallucination [Not Recovered/Not Resolved]
  - Therapeutic product effect decreased [Not Recovered/Not Resolved]
  - Oedema peripheral [Not Recovered/Not Resolved]
  - Hallucination [Recovered/Resolved]
